FAERS Safety Report 5742992-4 (Version None)
Quarter: 2008Q2

REPORT INFORMATION
  Report Type: 
  Country: None (occurrence: None)
  Receive Date: 20080519
  Receipt Date: 20080508
  Transmission Date: 20081010
  Serious: Yes (Other)
  Sender: FDA-Public Use
  Company Number: PHEH2007US08595

PATIENT
  Age: 55 Year
  Sex: Female
  Weight: 75.6 kg

DRUGS (5)
  1. ZELNORM [Suspect]
     Indication: IRRITABLE BOWEL SYNDROME
     Dosage: 6 MG, BID
     Route: 048
     Dates: start: 20060809, end: 20060906
  2. TRANXENE [Concomitant]
     Indication: ANXIETY
     Dosage: 7.5 MG, BID, PRN
     Route: 048
     Dates: start: 20030201
  3. SYNTHROID [Concomitant]
     Indication: HYPOTHYROIDISM
     Dosage: 88 UG, QD
     Route: 048
     Dates: start: 20000401
  4. FOSAMAX [Concomitant]
     Indication: OSTEOPOROSIS
     Dosage: 70 MG, QW
     Route: 048
     Dates: start: 20060725
  5. ZETIA [Concomitant]
     Indication: HYPERLIPIDAEMIA
     Dosage: 1/2 TABLET, DAILY
     Route: 048
     Dates: start: 20050927

REACTIONS (16)
  - ATRIAL FIBRILLATION [None]
  - CHEST DISCOMFORT [None]
  - CHEST PAIN [None]
  - DEPRESSION [None]
  - DRUG INEFFECTIVE [None]
  - DYSPNOEA EXERTIONAL [None]
  - ELECTROCARDIOGRAM AMBULATORY ABNORMAL [None]
  - FATIGUE [None]
  - GASTROOESOPHAGEAL REFLUX DISEASE [None]
  - HEART RATE INCREASED [None]
  - INSOMNIA [None]
  - ORAL HERPES [None]
  - PAIN [None]
  - PALPITATIONS [None]
  - SUPRAVENTRICULAR EXTRASYSTOLES [None]
  - VENTRICULAR EXTRASYSTOLES [None]
